FAERS Safety Report 6012191-X (Version None)
Quarter: 2008Q4

REPORT INFORMATION
  Report Type: 
  Country: None (occurrence: None)
  Receive Date: 20081218
  Receipt Date: 20081206
  Transmission Date: 20090506
  Serious: Yes (Other)
  Sender: FDA-Public Use
  Company Number: US-PFIZER INC-2008150411

PATIENT
  Sex: Male

DRUGS (3)
  1. CHANTIX [Suspect]
  2. ALCOHOL [Suspect]
  3. ANTIBIOTICS [Suspect]

REACTIONS (3)
  - ABNORMAL BEHAVIOUR [None]
  - MEMORY IMPAIRMENT [None]
  - PARANOIA [None]
